FAERS Safety Report 14105045 (Version 2)
Quarter: 2017Q4

REPORT INFORMATION
  Report Type: Spontaneous
  Country: US (occurrence: US)
  Receive Date: 20171018
  Receipt Date: 20171023
  Transmission Date: 20180321
  Serious: Yes (Other)
  Sender: FDA-Public Use
  Company Number: US-PFIZER INC-2017444509

PATIENT
  Age: 61 Year
  Sex: Male

DRUGS (2)
  1. SUNITINIB MALATE. [Suspect]
     Active Substance: SUNITINIB MALATE
     Dosage: 37.5 UNK, UNK
  2. SUNITINIB MALATE. [Suspect]
     Active Substance: SUNITINIB MALATE
     Indication: METASTATIC RENAL CELL CARCINOMA
     Dosage: 50 MG, CYCLIC (50MG 4/2 OFF PROTOCOL)

REACTIONS (9)
  - Lung disorder [Unknown]
  - Visual impairment [Unknown]
  - Fatigue [Not Recovered/Not Resolved]
  - Hypertension [Recovering/Resolving]
  - Erythema [Unknown]
  - Headache [Unknown]
  - Seizure [Unknown]
  - Urinary tract obstruction [Unknown]
  - Neoplasm progression [Unknown]
